FAERS Safety Report 6880548-0 (Version None)
Quarter: 2010Q3

REPORT INFORMATION
  Report Type: 
  Country: None (occurrence: None)
  Receive Date: 20100728
  Receipt Date: 20100716
  Transmission Date: 20110219
  Serious: Yes (Other)
  Sender: FDA-Public Use
  Company Number: US-GENZYME-THYM-1001684

PATIENT

DRUGS (4)
  1. THYMOGLOBULIN [Suspect]
     Indication: PROPHYLAXIS AGAINST TRANSPLANT REJECTION
     Dosage: 1.5 MG/KG, QD
     Route: 042
     Dates: start: 20070101, end: 20070101
  2. CALCINEURIN INHIBITOR [Concomitant]
     Indication: PRODUCT USED FOR UNKNOWN INDICATION
     Dosage: UNK
  3. MYCOPHENOLATE MOFETIL [Concomitant]
     Indication: IMMUNOSUPPRESSION
     Dosage: 3 G/DAY, QD
     Dates: start: 20070101, end: 20070101
  4. MYCOPHENOLATE MOFETIL [Concomitant]
     Dosage: 2 G/DAY, QD
     Dates: start: 20070101, end: 20070101

REACTIONS (1)
  - HEART TRANSPLANT REJECTION [None]
